FAERS Safety Report 6011360-2 (Version None)
Quarter: 2008Q4

REPORT INFORMATION
  Report Type: 
  Country: None (occurrence: None)
  Receive Date: 20081218
  Receipt Date: 20081204
  Transmission Date: 20090506
  Serious: Yes (Hospitalization)
  Sender: FDA-Public Use
  Company Number: US-PFIZER INC-2008150889

PATIENT
  Sex: Female

DRUGS (1)
  1. SUNITINIB MALATE [Suspect]
     Indication: MENINGIOMA
     Dosage: UNK
     Dates: start: 20080327

REACTIONS (4)
  - CEREBRAL HAEMORRHAGE [None]
  - DEPRESSED LEVEL OF CONSCIOUSNESS [None]
  - HEADACHE [None]
  - VOMITING [None]
